FAERS Safety Report 19855128 (Version 2)
Quarter: 2022Q1

REPORT INFORMATION
  Report Type: Report from Study
  Country: IT (occurrence: IT)
  Receive Date: 20210920
  Receipt Date: 20220317
  Transmission Date: 20220423
  Serious: Yes (Other)
  Sender: FDA-Public Use
  Company Number: None

PATIENT
  Age: 3 Month
  Sex: Female

DRUGS (2)
  1. HUMAN ROTAVIRUS A [Suspect]
     Active Substance: HUMAN ROTAVIRUS A
     Indication: Prophylaxis
     Dosage: 1 DF
     Route: 048
     Dates: start: 20210826
  2. BEXSERO [Suspect]
     Active Substance: NEISSERIA MENINGITIDIS GROUP B FHBP FUSION PROTEIN ANTIGEN\NEISSERIA MENINGITIDIS GROUP B NADA PROTE
     Indication: Prophylaxis
     Dosage: 1 DF
     Route: 030
     Dates: start: 20210826

REACTIONS (2)
  - Dysentery [Recovering/Resolving]
  - Nervousness [Recovering/Resolving]

NARRATIVE: CASE EVENT DATE: 20210826
